FAERS Safety Report 4620110-3 (Version None)
Quarter: 2005Q1

REPORT INFORMATION
  Report Type: 
  Country: None (occurrence: None)
  Receive Date: 20050324
  Receipt Date: 20050311
  Transmission Date: 20050727
  Serious: Yes (Hospitalization, Disabling, Other)
  Sender: FDA-Public Use
  Company Number: SUS1-2005-00213

PATIENT
  Age: 24 Year
  Sex: Female

DRUGS (2)
  1. MESALAZINE CR [Suspect]
     Dosage: ORAL
     Route: 048
  2. CACIHEW D3 [Concomitant]

REACTIONS (1)
  - ALLERGIC GRANULOMATOUS ANGIITIS [None]
